FAERS Safety Report 21298662 (Version 1)
Quarter: 2022Q3

REPORT INFORMATION
  Report Type: Spontaneous
  Country: US (occurrence: US)
  Receive Date: 20220906
  Receipt Date: 20220906
  Transmission Date: 20221026
  Serious: No
  Sender: FDA-Public Use
  Company Number: US-INCYTE CORPORATION-2022IN008276

PATIENT

DRUGS (2)
  1. JAKAFI [Suspect]
     Active Substance: RUXOLITINIB
     Indication: Myelodysplastic syndrome
     Dosage: 5 MILLIGRAM, TAKE 1 TABLET BY MOUTH TWICE DAILY ALTERNATING WITH 1 TABLET IN THE MORNING AND 2 TABLE
     Route: 048
     Dates: start: 20161013
  2. JAKAFI [Suspect]
     Active Substance: RUXOLITINIB
     Dosage: 10 MILLIGRAM, TAKE 1 TABLET BY MOUTH TWICE DAILY ALTERNATING WITH 1 TABLET IN THE MORNING AND 2 TABL
     Route: 048
     Dates: start: 20161013

REACTIONS (1)
  - Off label use [Unknown]

NARRATIVE: CASE EVENT DATE: 20161013
